FAERS Safety Report 5132970-0 (Version None)
Quarter: 2006Q4

REPORT INFORMATION
  Report Type: 
  Country: None (occurrence: None)
  Receive Date: 20061023
  Receipt Date: 20061011
  Transmission Date: 20070319
  Serious: Yes (Life-Threatening, Hospitalization, Other)
  Sender: FDA-Public Use
  Company Number: FR-PURDUE-GBR_2006_0002534

PATIENT
  Age: 48 Year
  Sex: Female

DRUGS (8)
  1. MORPHINE [Suspect]
     Indication: NEURALGIA
     Dosage: 60 MG, DAILY
     Route: 048
     Dates: start: 20060817, end: 20060820
  2. RIVOTRIL [Suspect]
     Indication: NEURALGIA
     Dosage: 90 DROP, DAILY
     Route: 048
     Dates: end: 20060820
  3. RIVOTRIL [Suspect]
     Dates: start: 20060830
  4. LEXOMIL [Suspect]
     Indication: DRUG USE FOR UNKNOWN INDICATION
     Dosage: .5 DF, DAILY
     Route: 048
  5. SERETIDE [Concomitant]
     Indication: DRUG USE FOR UNKNOWN INDICATION
     Dosage: 4 DF, DAILY
  6. THEOSTAT [Concomitant]
     Indication: DRUG USE FOR UNKNOWN INDICATION
     Dosage: 300 MG, BID
  7. THEOSTAT [Concomitant]
     Dosage: 100 MG, BID
  8. TERCIAN [Concomitant]
     Dosage: UNK, UNK
     Dates: start: 20060829

REACTIONS (12)
  - ASTHENIA [None]
  - CONFUSIONAL STATE [None]
  - DRUG INTERACTION [None]
  - GLASGOW COMA SCALE ABNORMAL [None]
  - HALLUCINATION, VISUAL [None]
  - HYPOREFLEXIA [None]
  - MIOSIS [None]
  - OXYGEN SATURATION DECREASED [None]
  - RALES [None]
  - RENAL IMPAIRMENT [None]
  - SOMNOLENCE [None]
  - TRANSAMINASES INCREASED [None]
